FAERS Safety Report 21322128 (Version 2)
Quarter: 2022Q3

REPORT INFORMATION
  Report Type: Report from Study
  Country: US (occurrence: US)
  Receive Date: 20220912
  Receipt Date: 20220918
  Transmission Date: 20221026
  Serious: Yes (Hospitalization)
  Sender: FDA-Public Use
  Company Number: US-NOVARTISPH-NVSC2022US203543

PATIENT
  Age: 7 Year
  Sex: Female
  Weight: 21.4 kg

DRUGS (11)
  1. HYCAMTIN [Suspect]
     Active Substance: TOPOTECAN HYDROCHLORIDE
     Indication: Refractory cancer
     Dosage: 0.75 MG/M2, QD (MAXIMUM 5 DAYS EVERY 21 DAYS, (0.75 MG/M2, IN 1 D)
     Route: 042
     Dates: start: 20220824
  2. VENETOCLAX [Suspect]
     Active Substance: VENETOCLAX
     Indication: Refractory cancer
     Dosage: 350 MG, QD (350 MG, IN 1 D)
     Route: 048
     Dates: start: 20220822
  3. CYCLOPHOSPHAMIDE [Suspect]
     Active Substance: CYCLOPHOSPHAMIDE
     Indication: Refractory cancer
     Dosage: 250 MG/M2, QD (MAXIMUM 5 DAYS EVERY 21 DAYS, (250 MG/M2, IN 1 D)
     Route: 042
     Dates: start: 20220824
  4. ONDANSETRON HYDROCHLORIDE [Concomitant]
     Active Substance: ONDANSETRON HYDROCHLORIDE
     Indication: Prophylaxis of nausea and vomiting
     Dosage: 4 MG, QD (4 MG 1 IN 1 D)
     Route: 048
     Dates: start: 20220822
  5. OXYCODONE [Concomitant]
     Active Substance: OXYCODONE
     Indication: Pain in extremity
     Dosage: 2.5 MG (4-6 HOURS AS NEEDED)
     Route: 065
     Dates: start: 20220822
  6. IBUPROFEN [Concomitant]
     Active Substance: IBUPROFEN
     Indication: Pain in extremity
     Dosage: 200 MG, Q6H (AS NEEDED 200 MG, 1 IN 6 HR)
     Route: 048
     Dates: start: 20220822
  7. ACETAMINOPHEN [Concomitant]
     Active Substance: ACETAMINOPHEN
     Indication: Pain in extremity
     Dosage: 1950 MG (325 MG, 1 IN 4 HR)
     Route: 048
     Dates: start: 20220822
  8. POLYETHYLENE GLYCOL [Concomitant]
     Active Substance: POLYETHYLENE GLYCOL
     Indication: Constipation
     Dosage: 17 G, QD (EVERY DAY AS NEEDED 17 G)
     Route: 048
     Dates: start: 20220825
  9. CETIRIZINE HYDROCHLORIDE [Concomitant]
     Active Substance: CETIRIZINE HYDROCHLORIDE
     Indication: Pain in extremity
     Dosage: 10 MG, QD (10 MG IN 1 D)
     Route: 048
     Dates: start: 202208
  10. SULFAMETHOXAZOLE AND TRIMETHOPRIM [Concomitant]
     Active Substance: SULFAMETHOXAZOLE\TRIMETHOPRIM
     Indication: Prophylaxis
     Dosage: 40 MG, BID (TWICE A DAY ON SATURDAY AND SUNDAY 40 MG)
     Route: 048
     Dates: start: 2022
  11. VITAMINS [Concomitant]
     Active Substance: VITAMINS
     Indication: General physical health deterioration
     Dosage: UNK, QD (1 TAB 1 IN 1 D)
     Route: 048
     Dates: start: 2022

REACTIONS (1)
  - Febrile neutropenia [Recovered/Resolved]

NARRATIVE: CASE EVENT DATE: 20220831
